FAERS Safety Report 20564881 (Version 1)
Quarter: 2022Q1

REPORT INFORMATION
  Report Type: Spontaneous
  Country: US (occurrence: US)
  Receive Date: 20220308
  Receipt Date: 20220308
  Transmission Date: 20220424
  Serious: No
  Sender: FDA-Public Use
  Company Number: US-ALLERGAN-2106721US

PATIENT
  Sex: Female
  Weight: 80.74 kg

DRUGS (8)
  1. ESTRACE [Suspect]
     Active Substance: ESTRADIOL
     Indication: Vulvovaginal dryness
     Dosage: UNK
     Route: 067
     Dates: start: 2018
  2. PREMARIN [Concomitant]
     Active Substance: ESTROGENS, CONJUGATED
  3. NITROGLYCERIN long acting [Concomitant]
  4. METOPROLOL [Concomitant]
     Active Substance: METOPROLOL
     Indication: Blood disorder
  5. UNSPECIFIED INGREDIENT [Concomitant]
     Active Substance: UNSPECIFIED INGREDIENT
  6. SYNTHROID [Concomitant]
     Active Substance: LEVOTHYROXINE SODIUM
     Indication: Hypothyroidism
  7. MODERNA COVID-19 VACCINE [Concomitant]
     Active Substance: ELASOMERAN
     Dosage: UNK
     Dates: start: 20210112, end: 20210112
  8. MODERNA COVID-19 VACCINE [Concomitant]
     Active Substance: ELASOMERAN
     Dosage: UNK
     Dates: start: 20210216, end: 20210216

REACTIONS (4)
  - Stomatitis [Not Recovered/Not Resolved]
  - Tongue coated [Not Recovered/Not Resolved]
  - Glossodynia [Not Recovered/Not Resolved]
  - Anorectal swelling [Recovered/Resolved]
